FAERS Safety Report 8015548-0 (Version None)
Quarter: 2011Q4

REPORT INFORMATION
  Report Type: 
  Country: None (occurrence: None)
  Receive Date: 20111228
  Receipt Date: 20111228
  Transmission Date: 20120403
  Serious: Yes (Hospitalization)
  Sender: FDA-Public Use
  Company Number: None

PATIENT
  Age: 49 Year
  Sex: Male
  Weight: 123.5 kg

DRUGS (1)
  1. FENTANYL [Suspect]
     Indication: PAIN
     Dosage: 1000 MG EVERY DAY IV
     Route: 042
     Dates: start: 20110924, end: 20111008

REACTIONS (9)
  - TREMOR [None]
  - HYPERTHERMIA [None]
  - MUSCLE RIGIDITY [None]
  - AGITATION [None]
  - SEROTONIN SYNDROME [None]
  - HYPERREFLEXIA [None]
  - BLOOD CREATINE PHOSPHOKINASE INCREASED [None]
  - AUTONOMIC NERVOUS SYSTEM IMBALANCE [None]
  - RHABDOMYOLYSIS [None]
